FAERS Safety Report 5208158-1 (Version None)
Quarter: 2006Q4

REPORT INFORMATION
  Report Type: 
  Country: None (occurrence: None)
  Receive Date: 20061027
  Receipt Date: 20060414
  Transmission Date: 20070319
  Serious: Yes (Hospitalization)
  Sender: FDA-Public Use
  Company Number: HQWYE840217APR06

PATIENT
  Age: 62 Year
  Sex: Female
  Weight: 65.83 kg

DRUGS (4)
  1. PREMARIN [Suspect]
     Indication: HYSTERECTOMY
     Dosage: 0.3 MG 1X PER 1 DAY, ORAL
     Route: 048
     Dates: start: 19860101, end: 20030101
  2. PREMARIN [Suspect]
     Indication: MENOPAUSE
     Dosage: 0.3 MG 1X PER 1 DAY, ORAL
     Route: 048
     Dates: start: 19860101, end: 20030101
  3. EVISTA [Suspect]
     Dosage: 60 MG DAILY, ORAL
     Route: 048
     Dates: start: 20030101
  4. HYDROCHLOROTHIAZIDE [Concomitant]

REACTIONS (3)
  - BREAST PAIN [None]
  - CEREBROVASCULAR ACCIDENT [None]
  - INAPPROPRIATE SCHEDULE OF DRUG ADMINISTRATION [None]
